FAERS Safety Report 9503550 (Version 1)
Quarter: 2013Q1

REPORT INFORMATION
  Report Type: Spontaneous
  Country: US (occurrence: None)
  Receive Date: 20130130
  Receipt Date: 20130130
  Transmission Date: 20140127
  Serious: Yes (Hospitalization)
  Sender: FDA-Public Use
  Company Number: US2012100005571

PATIENT
  Sex: Female
  Weight: 112.5 kg

DRUGS (3)
  1. BYDUREON [Suspect]
     Indication: TYPE 2 DIABETES MELLITUS
     Route: 058
     Dates: start: 201202
  2. BYETTA [Suspect]
     Indication: TYPE 2 DIABETES MELLITUS
     Route: 058
     Dates: start: 2010
  3. GLIPIZIDE [Concomitant]

REACTIONS (6)
  - Dehydration [None]
  - Cholelithiasis [None]
  - Weight decreased [None]
  - Abdominal pain upper [None]
  - Eructation [None]
  - Decreased appetite [None]
